FAERS Safety Report 4778883-5 (Version None)
Quarter: 2005Q3

REPORT INFORMATION
  Report Type: 
  Country: None (occurrence: None)
  Receive Date: 20050926
  Receipt Date: 20050914
  Transmission Date: 20060218
  Serious: Yes (Hospitalization)
  Sender: FDA-Public Use
  Company Number: FR-BRISTOL-MYERS SQUIBB COMPANY-13117775

PATIENT
  Age: 70 Year
  Sex: Male

DRUGS (3)
  1. ERBITUX [Suspect]
     Route: 042
     Dates: start: 20050913, end: 20050913
  2. POLARAMINE [Concomitant]
     Indication: PREMEDICATION
     Dates: start: 20050913, end: 20050913
  3. AZANTAC [Concomitant]
     Indication: PREMEDICATION
     Dates: start: 20050913, end: 20050913

REACTIONS (2)
  - ANAPHYLACTIC SHOCK [None]
  - LOSS OF CONSCIOUSNESS [None]
